FAERS Safety Report 25456964 (Version 3)
Quarter: 2025Q2

REPORT INFORMATION
  Report Type: Spontaneous
  Country: US (occurrence: US)
  Receive Date: 20250619
  Receipt Date: 20250620
  Transmission Date: 20250717
  Serious: Yes (Other)
  Sender: SANOFI AVENTIS
  Company Number: US-SA-2025SA172895

PATIENT
  Age: 16 Year
  Sex: Female

DRUGS (1)
  1. DUPIXENT [Suspect]
     Active Substance: DUPILUMAB
     Dosage: 300 MG, QOW
     Route: 058

REACTIONS (9)
  - Systemic lupus erythematosus [Unknown]
  - Antinuclear antibody increased [Unknown]
  - Migraine [Unknown]
  - Fatigue [Unknown]
  - Joint noise [Unknown]
  - Asthma [Unknown]
  - Eczema [Unknown]
  - Hypersensitivity [Unknown]
  - Arthralgia [Unknown]
